FAERS Safety Report 8788750 (Version 1)
Quarter: 2012Q4

REPORT INFORMATION
  Report Type: 
  Country: US (occurrence: US)
  Receive Date: 20120917
  Receipt Date: 20120917
  Transmission Date: 20130627
  Serious: Yes (Other)
  Sender: FDA-Public Use
  Company Number: US-JNJFOC-20120903622

PATIENT
  Age: 33 Year
  Sex: Male

DRUGS (3)
  1. REMICADE [Suspect]
     Indication: INTESTINAL STENOSIS
     Route: 042
     Dates: start: 201108
  2. CORTICOSTEROIDS [Concomitant]
     Route: 065
  3. UNSPECIFIED NARCOTIC [Concomitant]
     Route: 065

REACTIONS (3)
  - Surgery [Unknown]
  - Intestinal stenosis [Unknown]
  - Drug ineffective [Unknown]
